FAERS Safety Report 7564880-3 (Version None)
Quarter: 2011Q2

REPORT INFORMATION
  Report Type: 
  Country: None (occurrence: None)
  Receive Date: 20110622
  Receipt Date: 20110214
  Transmission Date: 20111010
  Serious: Yes (Other)
  Sender: FDA-Public Use
  Company Number: US-MYLANLABS-2011S1001845

PATIENT
  Age: 26 Year
  Sex: Female
  Weight: 99.79 kg

DRUGS (10)
  1. M.V.I. [Concomitant]
     Route: 048
  2. DESMOPRESSIN [Concomitant]
     Route: 048
  3. OXYBUTYNIN [Concomitant]
     Route: 048
  4. CLOZAPINE [Suspect]
     Indication: PSYCHOTIC DISORDER
     Route: 048
     Dates: end: 20110119
  5. CLOZAPINE [Suspect]
     Route: 048
     Dates: start: 20110121
  6. COGENTIN [Concomitant]
     Route: 048
  7. LUVOX [Concomitant]
     Route: 048
  8. DEPAKOTE [Concomitant]
  9. OMEPRAZOLE [Concomitant]
     Route: 048
  10. MINIPRESS [Concomitant]

REACTIONS (2)
  - GRANULOCYTOPENIA [None]
  - LEUKOPENIA [None]
